FAERS Safety Report 7018739-0 (Version None)
Quarter: 2010Q3

REPORT INFORMATION
  Report Type: 
  Country: None (occurrence: None)
  Receive Date: 20100928
  Receipt Date: 20100924
  Transmission Date: 20110219
  Serious: Yes (Hospitalization, Other)
  Sender: FDA-Public Use
  Company Number: IT-BRISTOL-MYERS SQUIBB COMPANY-15282338

PATIENT
  Age: 83 Year
  Sex: Female

DRUGS (5)
  1. COUMADIN [Suspect]
     Indication: ATRIAL FIBRILLATION
     Dates: start: 20100801, end: 20100819
  2. LANOXIN [Concomitant]
     Dosage: TABS
     Route: 048
  3. DILATREND [Concomitant]
     Dosage: TABS
     Route: 048
  4. ALDACTONE [Concomitant]
     Dosage: CAPS
     Route: 048
  5. LASIX [Concomitant]
     Route: 048

REACTIONS (2)
  - ARTERIAL THROMBOSIS [None]
  - CEREBROVASCULAR ACCIDENT [None]
